FAERS Safety Report 4417917-4 (Version None)
Quarter: 2004Q2

REPORT INFORMATION
  Report Type: 
  Country: None (occurrence: None)
  Receive Date: 20040622
  Receipt Date: 20030521
  Transmission Date: 20050107
  Serious: Yes (Other)
  Sender: FDA-Public Use
  Company Number: 333703

PATIENT
  Age: 54 Year
  Sex: Female
  Weight: 53.1 kg

DRUGS (1)
  1. XELODA [Suspect]
     Dosage: 1800 MG 2 PER DAY ORAL
     Route: 048
     Dates: start: 20030201, end: 20030224

REACTIONS (7)
  - CONSTIPATION [None]
  - EPISTAXIS [None]
  - ERYTHEMA [None]
  - FATIGUE [None]
  - NAUSEA [None]
  - PALMAR-PLANTAR ERYTHRODYSAESTHESIA SYNDROME [None]
  - STOMATITIS [None]
